FAERS Safety Report 5875190-4 (Version None)
Quarter: 2008Q3

REPORT INFORMATION
  Report Type: 
  Country: None (occurrence: None)
  Receive Date: 20080909
  Receipt Date: 20080829
  Transmission Date: 20090109
  Serious: Yes (Hospitalization)
  Sender: FDA-Public Use
  Company Number: FI-JNJFOC-20080800871

PATIENT
  Age: 23 Year
  Sex: Female

DRUGS (4)
  1. REMICADE [Suspect]
     Route: 042
  2. REMICADE [Suspect]
     Indication: CROHN'S DISEASE
     Route: 042
  3. UNSPECIFIED ANTIHISTAMINE [Concomitant]
     Indication: PREMEDICATION
  4. ASACOL [Concomitant]
     Dosage: TREATMENT FOR APPROXIMENTLY 1 YEAR AND 3 MONTHS

REACTIONS (6)
  - FRACTURE [None]
  - LABORATORY TEST ABNORMAL [None]
  - MUSCLE DISORDER [None]
  - ROAD TRAFFIC ACCIDENT [None]
  - VITILIGO [None]
  - WOUND [None]
